FAERS Safety Report 6632724-X (Version None)
Quarter: 2010Q1

REPORT INFORMATION
  Report Type: 
  Country: None (occurrence: None)
  Receive Date: 20100312
  Receipt Date: 20100308
  Transmission Date: 20100710
  Serious: Yes (Hospitalization)
  Sender: FDA-Public Use
  Company Number: TR-ELI_LILLY_AND_COMPANY-TR201003002333

PATIENT
  Age: 47 Year
  Sex: Female

DRUGS (5)
  1. HUMULIN 70/30 [Suspect]
     Indication: DIABETES MELLITUS
     Dosage: 38 IU, EACH MORNING
     Route: 058
     Dates: start: 19960101
  2. HUMULIN 70/30 [Suspect]
     Dosage: 25 IU, EACH EVENING
     Route: 058
     Dates: start: 19960101
  3. HUMULIN 70/30 [Suspect]
     Dosage: 8 IU, OTHER
     Route: 058
     Dates: start: 19960101
  4. GLIFOR [Concomitant]
     Indication: DIABETES MELLITUS
     Dosage: UNK UNK, 3/D
     Route: 048
  5. DIAMICRON MR [Concomitant]
     Indication: DIABETES MELLITUS
     Dosage: 30 MG, DAILY (1/D)
     Route: 048

REACTIONS (2)
  - BLOOD GLUCOSE INCREASED [None]
  - NEPHROLITHIASIS [None]
